FAERS Safety Report 23843272 (Version 1)
Quarter: 2024Q2

REPORT INFORMATION
  Report Type: Spontaneous
  Country: ES (occurrence: ES)
  Receive Date: 20240510
  Receipt Date: 20240510
  Transmission Date: 20240716
  Serious: Yes (Hospitalization, Other)
  Sender: FDA-Public Use
  Company Number: ES-VERTEX PHARMACEUTICALS-2024-007817

PATIENT
  Age: 7 Year
  Sex: Female
  Weight: 21 kg

DRUGS (15)
  1. ELEXACAFTOR\IVACAFTOR\TEZACAFTOR [Suspect]
     Active Substance: ELEXACAFTOR\IVACAFTOR\TEZACAFTOR
     Indication: Cystic fibrosis
     Dosage: UNK
     Route: 048
  2. ELEXACAFTOR\IVACAFTOR\TEZACAFTOR [Suspect]
     Active Substance: ELEXACAFTOR\IVACAFTOR\TEZACAFTOR
     Dosage: 37.5MG IVACAFTOR/ 25MG TEZACAFTOR/ 50MG ELEXACAFTOR, 1 CAPSULE
     Route: 048
  3. ELEXACAFTOR\IVACAFTOR\TEZACAFTOR [Suspect]
     Active Substance: ELEXACAFTOR\IVACAFTOR\TEZACAFTOR
     Dosage: 37.5MG IVACAFTOR/ 25MG TEZACAFTOR/ 50MG ELEXACAFTOR, 2 CAPSULE IN AM
     Route: 048
  4. ELEXACAFTOR\IVACAFTOR\TEZACAFTOR [Suspect]
     Active Substance: ELEXACAFTOR\IVACAFTOR\TEZACAFTOR
     Dosage: 37.5MG IVACAFTOR/ 25MG TEZACAFTOR/ 50MG ELEXACAFTOR, 1 CAPSULE PER DAY
     Route: 048
  5. ELEXACAFTOR\IVACAFTOR\TEZACAFTOR [Suspect]
     Active Substance: ELEXACAFTOR\IVACAFTOR\TEZACAFTOR
     Dosage: TWO CAPSULES
     Route: 048
  6. KALYDECO [Suspect]
     Active Substance: IVACAFTOR
     Indication: Cystic fibrosis
     Dosage: 75 MG, 1 CAPSULE AT NIGHT
     Route: 048
  7. KALYDECO [Suspect]
     Active Substance: IVACAFTOR
     Dosage: HALF CAPSULE AT NIGHT
     Route: 048
  8. KALYDECO [Suspect]
     Active Substance: IVACAFTOR
     Dosage: ONE CAPSULE AT NIGHT
     Route: 048
  9. PULMOZYME [Concomitant]
     Active Substance: DORNASE ALFA
  10. HYANEB [Concomitant]
  11. CREON [Concomitant]
     Active Substance: PANCRELIPASE AMYLASE\PANCRELIPASE LIPASE\PANCRELIPASE PROTEASE
  12. VITAMIN E [Concomitant]
     Active Substance: .ALPHA.-TOCOPHEROL
  13. VITAMIN D [Concomitant]
     Active Substance: VITAMIN D NOS
  14. KONAKION [Concomitant]
     Active Substance: PHYTONADIONE
  15. CASENBIOTIC [Concomitant]

REACTIONS (14)
  - Drug hypersensitivity [Unknown]
  - Pneumonia haemophilus [Unknown]
  - Acute respiratory failure [Unknown]
  - Cough [Recovered/Resolved]
  - Breath sounds abnormal [Unknown]
  - Respiratory syncytial virus infection [Recovering/Resolving]
  - Vomiting [Recovered/Resolved]
  - Malaise [Unknown]
  - General physical health deterioration [Unknown]
  - Periorbital swelling [Unknown]
  - Mucosal dryness [Unknown]
  - Pallor [Unknown]
  - Abdominal tenderness [Recovered/Resolved]
  - Rash pruritic [Unknown]
